FAERS Safety Report 9029050 (Version 1)
Quarter: 2013Q1

REPORT INFORMATION
  Report Type: Spontaneous
  Country: JP (occurrence: JP)
  Receive Date: 20130122
  Receipt Date: 20130122
  Transmission Date: 20140127
  Serious: Yes (Other)
  Sender: FDA-Public Use
  Company Number: JP-ROCHE-1179832

PATIENT
  Age: 68 Year
  Sex: Male

DRUGS (9)
  1. AVASTIN [Suspect]
     Indication: COLON CANCER
     Dosage: UNCERTAIN DOSAGE AND 11 COURSES
     Route: 041
  2. AVASTIN [Suspect]
     Indication: COLON CANCER
     Dosage: UNCERTAIN DOSAGE AND THREE COURSES
     Route: 041
  3. XELODA [Suspect]
     Indication: COLON CANCER
     Dosage: UNCERTAIN DOSAGE AND 11 COURSES
     Route: 048
  4. ELPLAT [Concomitant]
     Indication: COLON CANCER
     Dosage: UNCERTAIN DOSAGE AND 11 COURSES
     Route: 041
  5. IRINOTECAN HYDROCHLORIDE [Concomitant]
     Indication: COLON CANCER
     Dosage: UNCERTAIN DOSAGE AND THREE COURSES
     Route: 041
  6. LEVOFOLINATE [Concomitant]
     Indication: COLON CANCER
     Dosage: UNCERTAIN DOSAGE AND THREE COURSES
     Route: 041
  7. 5-FU [Concomitant]
     Indication: COLON CANCER
     Dosage: UNCERTAIN DOSAGE AND THREE COURSES
     Route: 040
  8. 5-FU [Concomitant]
     Indication: COLON CANCER
     Dosage: UNCERTAIN DOSAGE AND THREE COURSES
     Route: 041
  9. EPADEL [Concomitant]
     Dosage: DOSAGE IS UNCERTAIN.
     Route: 048

REACTIONS (1)
  - Hypertriglyceridaemia [Unknown]
